FAERS Safety Report 21568732 (Version 1)
Quarter: 2022Q4

REPORT INFORMATION
  Report Type: Spontaneous
  Country: US (occurrence: None)
  Receive Date: 20221107
  Receipt Date: 20221107
  Transmission Date: 20230113
  Serious: Yes (Life-Threatening, Hospitalization)
  Sender: FDA-Public Use
  Company Number: None

PATIENT
  Age: 42 Year
  Sex: Male
  Weight: 125 kg

DRUGS (3)
  1. LURASIDONE [Suspect]
     Active Substance: LURASIDONE
     Indication: Bipolar I disorder
     Dosage: OTHER FREQUENCY : BEDTIME;?
     Route: 048
     Dates: start: 20220622, end: 20220808
  2. LURASIDONE [Suspect]
     Active Substance: LURASIDONE
     Indication: Post-traumatic stress disorder
  3. LURASIDONE [Suspect]
     Active Substance: LURASIDONE
     Indication: Panic disorder

REACTIONS (3)
  - Depression [None]
  - Hallucination [None]
  - Suicide attempt [None]

NARRATIVE: CASE EVENT DATE: 20220808
